FAERS Safety Report 9359640 (Version 1)
Quarter: 2013Q2

REPORT INFORMATION
  Report Type: Spontaneous
  Country: US (occurrence: US)
  Receive Date: 20130620
  Receipt Date: 20130620
  Transmission Date: 20140414
  Serious: No
  Sender: FDA-Public Use
  Company Number: US-US-EMD SERONO, INC.-7174544

PATIENT
  Sex: Male

DRUGS (5)
  1. REBIF [Suspect]
     Indication: PRODUCT USED FOR UNKNOWN INDICATION
     Route: 058
  2. REBIF [Suspect]
     Route: 058
  3. REBIF [Suspect]
     Route: 058
  4. REBIF [Suspect]
     Route: 058
  5. UNSPECIFIED MEDICATIONS [Concomitant]
     Indication: PRODUCT USED FOR UNKNOWN INDICATION

REACTIONS (2)
  - Central nervous system lesion [Unknown]
  - Hepatic enzyme increased [Recovered/Resolved]
